FAERS Safety Report 8804459 (Version 1)
Quarter: 2012Q4

REPORT INFORMATION
  Report Type: 
  Country: US (occurrence: US)
  Receive Date: 20120924
  Receipt Date: 20120924
  Transmission Date: 20130627
  Serious: No
  Sender: FDA-Public Use
  Company Number: US-B.I. PHARMACEUTICALS,INC./RIDGEFIELD-2012-BP-22870BP

PATIENT
  Sex: Male
  Weight: 125 kg

DRUGS (5)
  1. SPIRIVA [Suspect]
     Indication: CHRONIC OBSTRUCTIVE PULMONARY DISEASE
     Dosage: 36 mcg
     Route: 048
     Dates: start: 201208
  2. TOPROL XL [Concomitant]
     Indication: HYPERTENSION
     Dosage: 50 mg
     Route: 048
  3. CRESTOR [Concomitant]
     Indication: BLOOD CHOLESTEROL INCREASED
     Dosage: 40 mg
     Route: 048
  4. ASPIRIN [Concomitant]
     Dosage: 325 mg
     Route: 048
  5. ZETIA [Concomitant]
     Indication: BLOOD CHOLESTEROL INCREASED
     Dosage: 10 mg
     Route: 048

REACTIONS (1)
  - Blood pressure increased [Not Recovered/Not Resolved]
